FAERS Safety Report 7326565-8 (Version None)
Quarter: 2011Q1

REPORT INFORMATION
  Report Type: 
  Country: None (occurrence: None)
  Receive Date: 20110222
  Receipt Date: 20110207
  Transmission Date: 20110831
  Serious: Yes (Other)
  Sender: FDA-Public Use
  Company Number: 2011PV000009

PATIENT
  Age: 7 Year
  Sex: Male

DRUGS (8)
  1. VINCRISTINE [Concomitant]
  2. CYTARABINE [Concomitant]
  3. METHOTREXATE [Concomitant]
  4. PEG-ASPARAGINASE [Concomitant]
  5. DEPOCYT [Suspect]
     Indication: METASTASES TO MENINGES
     Dosage: 35 MG;QOW;IT
     Route: 037
  6. ETOPOSIDE [Concomitant]
  7. DEXAMETHASONE [Concomitant]
  8. HYDROCORTISONE [Concomitant]

REACTIONS (1)
  - BENIGN INTRACRANIAL HYPERTENSION [None]
